FAERS Safety Report 21535862 (Version 1)
Quarter: 2022Q4

REPORT INFORMATION
  Report Type: Report from Study
  Country: US (occurrence: US)
  Receive Date: 20221101
  Receipt Date: 20221101
  Transmission Date: 20230113
  Serious: Yes (Hospitalization)
  Sender: FDA-Public Use
  Company Number: US-ABBVIE-4182017

PATIENT
  Sex: Female

DRUGS (12)
  1. RINVOQ [Suspect]
     Active Substance: UPADACITINIB
     Indication: Rheumatoid arthritis
     Dosage: 15 MG
     Route: 048
  2. OMEPRAZOLE CPD [Concomitant]
     Indication: Product used for unknown indication
     Route: 048
  3. VENLAFAXINE CP2 [Concomitant]
     Indication: Product used for unknown indication
     Route: 048
  4. SPIRIVA RESP AER 1.25MCG/ [Concomitant]
     Indication: Product used for unknown indication
  5. VENTOLIN HFA AER 108 (90 LOSARTAN POT TAB 100MG [Concomitant]
     Indication: Product used for unknown indication
  6. FLUTICASONE SUS 50MCG/AC [Concomitant]
     Indication: Product used for unknown indication
  7. BREO ELLIPTA AEP 100-25MC [Concomitant]
     Indication: Product used for unknown indication
  8. PRADAXA CAP [Concomitant]
     Indication: Product used for unknown indication
     Route: 048
  9. PREDNISONE [Concomitant]
     Active Substance: PREDNISONE
     Indication: Product used for unknown indication
     Route: 048
  10. FUROSEMIDE TAB [Concomitant]
     Indication: Product used for unknown indication
     Route: 048
  11. OXYBUTYNIN C TAB [Concomitant]
     Indication: Product used for unknown indication
     Route: 048
  12. ATENOLOL [Concomitant]
     Active Substance: ATENOLOL
     Indication: Product used for unknown indication
     Route: 048

REACTIONS (1)
  - Hospitalisation [Unknown]
